FAERS Safety Report 5470110-9 (Version None)
Quarter: 2007Q3

REPORT INFORMATION
  Report Type: 
  Country: None (occurrence: None)
  Receive Date: 20070927
  Receipt Date: 20060825
  Transmission Date: 20080115
  Serious: No
  Sender: FDA-Public Use
  Company Number: US-AMGEN-KDL191344

PATIENT
  Sex: Male

DRUGS (3)
  1. NEUPOGEN [Suspect]
     Indication: NEUTROPENIA
     Route: 058
     Dates: start: 20060605
  2. INTERFERON [Concomitant]
     Route: 051
  3. RIBAVIRIN [Concomitant]
     Route: 065

REACTIONS (6)
  - ARTHRALGIA [None]
  - BONE PAIN [None]
  - FATIGUE [None]
  - PYREXIA [None]
  - SINUS HEADACHE [None]
  - WHITE BLOOD CELL COUNT INCREASED [None]
